FAERS Safety Report 16796964 (Version 1)
Quarter: 2019Q3

REPORT INFORMATION
  Report Type: Report from Study
  Country: US (occurrence: US)
  Receive Date: 20190911
  Receipt Date: 20190911
  Transmission Date: 20191005
  Serious: Yes (Other)
  Sender: FDA-Public Use
  Company Number: US-BIOGEN-2019BI00783196

PATIENT
  Sex: Female

DRUGS (2)
  1. TECFIDERA [Suspect]
     Active Substance: DIMETHYL FUMARATE
     Route: 048
     Dates: start: 20190822
  2. TECFIDERA [Suspect]
     Active Substance: DIMETHYL FUMARATE
     Indication: MULTIPLE SCLEROSIS
     Route: 065
     Dates: start: 20161103, end: 20190101

REACTIONS (4)
  - Flushing [Not Recovered/Not Resolved]
  - Brain neoplasm [Unknown]
  - Pituitary-dependent Cushing^s syndrome [Unknown]
  - Underdose [Unknown]

NARRATIVE: CASE EVENT DATE: 2017
